FAERS Safety Report 23803134 (Version 1)
Quarter: 2024Q2

REPORT INFORMATION
  Report Type: Spontaneous
  Country: US (occurrence: None)
  Receive Date: 20240430
  Receipt Date: 20240430
  Transmission Date: 20240715
  Serious: Yes (Hospitalization)
  Sender: FDA-Public Use
  Company Number: None

PATIENT
  Age: 78 Year
  Sex: Male

DRUGS (1)
  1. APIXABAN [Suspect]
     Active Substance: APIXABAN
     Dosage: FREQUENCY : TWICE A DAY;?
     Route: 048
     Dates: start: 20221024

REACTIONS (7)
  - Cerebrovascular accident [None]
  - Joint effusion [None]
  - Atrial fibrillation [None]
  - SARS-CoV-2 test positive [None]
  - Cardiac arrest [None]
  - Muscular weakness [None]
  - Device malfunction [None]

NARRATIVE: CASE EVENT DATE: 20230117
